FAERS Safety Report 11292856 (Version 1)
Quarter: 2015Q3

REPORT INFORMATION
  Report Type: Spontaneous
  Country: IL (occurrence: IL)
  Receive Date: 20150722
  Receipt Date: 20150722
  Transmission Date: 20151125
  Serious: Yes (Hospitalization, Other)
  Sender: FDA-Public Use
  Company Number: IL-JNJFOC-20150714454

PATIENT
  Sex: Female

DRUGS (1)
  1. SIMPONI [Suspect]
     Active Substance: GOLIMUMAB
     Indication: RHEUMATOID ARTHRITIS
     Route: 058
     Dates: start: 20131006

REACTIONS (3)
  - Arthralgia [Not Recovered/Not Resolved]
  - Jaw disorder [Recovering/Resolving]
  - Dental implantation [Unknown]

NARRATIVE: CASE EVENT DATE: 2014
